FAERS Safety Report 8763863 (Version 1)
Quarter: 2012Q4

REPORT INFORMATION
  Report Type: 
  Country: EC (occurrence: EC)
  Receive Date: 20120831
  Receipt Date: 20120831
  Transmission Date: 20130627
  Serious: Yes (Death, Hospitalization)
  Sender: FDA-Public Use
  Company Number: PHHY2012EC075141

PATIENT
  Sex: Female

DRUGS (3)
  1. EXELON [Suspect]
     Indication: DEMENTIA ALZHEIMER^S TYPE
     Dosage: 1.5 mg, UNK
     Route: 048
     Dates: start: 2006
  2. EXELON [Suspect]
     Dosage: 3 mg, UNK
     Route: 048
  3. EXELON PATCH [Suspect]
     Indication: DEMENTIA ALZHEIMER^S TYPE
     Dosage: 4.6 mg / 5 cm
     Route: 062
     Dates: start: 2006

REACTIONS (1)
  - Death [Fatal]
